FAERS Safety Report 16425424 (Version 1)
Quarter: 2019Q2

REPORT INFORMATION
  Report Type: Spontaneous
  Country: US (occurrence: US)
  Receive Date: 20190613
  Receipt Date: 20190613
  Transmission Date: 20190711
  Serious: Yes (Hospitalization)
  Sender: FDA-Public Use
  Company Number: US-VERTEX PHARMACEUTICALS-2019-005335

PATIENT
  Sex: Male

DRUGS (12)
  1. URSODIOL. [Concomitant]
     Active Substance: URSODIOL
  2. ALENDRONATE [Concomitant]
     Active Substance: ALENDRONATE SODIUM
  3. AMITIZA [Concomitant]
     Active Substance: LUBIPROSTONE
  4. SPIRIVA [Concomitant]
     Active Substance: TIOTROPIUM BROMIDE MONOHYDRATE
  5. CAYSTON [Concomitant]
     Active Substance: AZTREONAM
  6. PULMOZYME [Concomitant]
     Active Substance: DORNASE ALFA
  7. SODIUM CHLORIDE. [Concomitant]
     Active Substance: SODIUM CHLORIDE
  8. VENTOLIN HFA [Concomitant]
     Active Substance: ALBUTEROL SULFATE
  9. ORKAMBI [Suspect]
     Active Substance: IVACAFTOR\LUMACAFTOR
     Indication: CYSTIC FIBROSIS
     Dosage: 2 TABLETS (200/125 MG), BID
     Route: 048
     Dates: start: 20160218
  10. TOBI [Concomitant]
     Active Substance: TOBRAMYCIN
  11. CROMOLYN SOD [Concomitant]
     Active Substance: CROMOLYN SODIUM
  12. PHYTONADIONE. [Concomitant]
     Active Substance: PHYTONADIONE

REACTIONS (1)
  - Cystic fibrosis [Not Recovered/Not Resolved]

NARRATIVE: CASE EVENT DATE: 2019
